FAERS Safety Report 21558134 (Version 2)
Quarter: 2022Q4

REPORT INFORMATION
  Report Type: Report from Study
  Country: CA (occurrence: CA)
  Receive Date: 20221107
  Receipt Date: 20221207
  Transmission Date: 20230113
  Serious: Yes (Other)
  Sender: FDA-Public Use
  Company Number: CA-BRISTOL-MYERS SQUIBB COMPANY-2022-041388

PATIENT
  Age: 58 Year
  Sex: Male
  Weight: 69 kg

DRUGS (4)
  1. OPDIVO [Suspect]
     Active Substance: NIVOLUMAB
     Indication: Oesophageal carcinoma
     Route: 042
     Dates: start: 20220504
  2. OPDIVO [Suspect]
     Active Substance: NIVOLUMAB
     Route: 042
     Dates: start: 20220504
  3. TELMISARTAN [Concomitant]
     Active Substance: TELMISARTAN
     Indication: Product used for unknown indication
     Route: 065
  4. ATORVASTATIN [Concomitant]
     Active Substance: ATORVASTATIN
     Indication: Product used for unknown indication
     Route: 065

REACTIONS (41)
  - Dry eye [Recovering/Resolving]
  - Anxiety [Unknown]
  - Contusion [Recovering/Resolving]
  - Temperature intolerance [Unknown]
  - Cough [Unknown]
  - Dyspepsia [Recovered/Resolved]
  - Dyspnoea [Unknown]
  - Chest pain [Recovered/Resolved]
  - Heart rate increased [Recovered/Resolved]
  - Constipation [Recovering/Resolving]
  - Abdominal pain upper [Unknown]
  - Urine output decreased [Not Recovered/Not Resolved]
  - Memory impairment [Not Recovered/Not Resolved]
  - Dizziness [Not Recovered/Not Resolved]
  - Headache [Unknown]
  - Thirst [Recovered/Resolved]
  - Asthenia [Unknown]
  - Pain [Unknown]
  - Chromaturia [Unknown]
  - Disturbance in attention [Unknown]
  - Decreased appetite [Unknown]
  - Musculoskeletal chest pain [Unknown]
  - Dry skin [Recovered/Resolved]
  - Skin exfoliation [Not Recovered/Not Resolved]
  - Productive cough [Unknown]
  - Alopecia [Unknown]
  - Skin discolouration [Recovering/Resolving]
  - Weight decreased [Unknown]
  - Fatigue [Unknown]
  - Chest discomfort [Unknown]
  - Muscle fatigue [Recovered/Resolved]
  - Feeling abnormal [Recovering/Resolving]
  - Vitamin B12 decreased [Unknown]
  - Skin depigmentation [Unknown]
  - Rash [Not Recovered/Not Resolved]
  - Paraesthesia [Not Recovered/Not Resolved]
  - Haematochezia [Recovered/Resolved]
  - Weight increased [Unknown]
  - Vision blurred [Recovered/Resolved]
  - Pharyngitis [Unknown]
  - Ear infection [Unknown]

NARRATIVE: CASE EVENT DATE: 20220601
